FAERS Safety Report 9995239 (Version 3)
Quarter: 2014Q2

REPORT INFORMATION
  Report Type: Spontaneous
  Country: US (occurrence: US)
  Receive Date: 20140311
  Receipt Date: 20140523
  Transmission Date: 20141212
  Serious: No
  Sender: FDA-Public Use
  Company Number: US-009507513-1403USA001782

PATIENT
  Sex: Male

DRUGS (10)
  1. PROVENTIL [Suspect]
     Indication: CHRONIC OBSTRUCTIVE PULMONARY DISEASE
     Dosage: 2 PUFFS EVERY 4 TO 6 HOURS AS NEEDED
     Route: 055
  2. RAMIPRIL [Concomitant]
  3. FLOMAX (MORNIFLUMATE) [Concomitant]
  4. PROTONIX [Concomitant]
  5. METOPROLOL [Concomitant]
  6. PERCOCET [Concomitant]
  7. ADVAIR [Concomitant]
  8. SPIRIVA [Concomitant]
  9. FLOVENT [Concomitant]
  10. PROAIR (ALBUTEROL SULFATE) [Concomitant]
     Indication: CHRONIC OBSTRUCTIVE PULMONARY DISEASE

REACTIONS (3)
  - Dyspnoea [Unknown]
  - Product quality issue [Unknown]
  - Product quality issue [Unknown]
